FAERS Safety Report 8990633 (Version 1)
Quarter: 2012Q4

REPORT INFORMATION
  Report Type: 
  Country: CZ (occurrence: CZ)
  Receive Date: 20121228
  Receipt Date: 20121228
  Transmission Date: 20130627
  Serious: Yes (Hospitalization)
  Sender: FDA-Public Use
  Company Number: CZ-AMGEN-CZESP2012082469

PATIENT
  Age: 58 Year
  Sex: Male

DRUGS (21)
  1. PEGFILGRASTIM [Suspect]
     Indication: DIFFUSE LARGE B-CELL LYMPHOMA
     Dosage: 6 mg, UNK
     Route: 058
     Dates: start: 20120316
  2. RITUXIMAB [Suspect]
     Indication: DIFFUSE LARGE B-CELL LYMPHOMA
     Dosage: 800 mg, UNK
     Route: 042
     Dates: start: 20120314
  3. VINCRISTIN [Suspect]
     Indication: DIFFUSE LARGE B-CELL LYMPHOMA
     Dosage: 2 mg, UNK
     Route: 042
     Dates: start: 20120315
  4. CYCLOPHOSPHAMIDE [Suspect]
     Indication: DIFFUSE LARGE B-CELL LYMPHOMA
     Dosage: 6000 mg, UNK
     Route: 042
     Dates: start: 20120315
  5. DOXORUBICIN [Suspect]
     Indication: DIFFUSE LARGE B-CELL LYMPHOMA
     Dosage: 160 mg, UNK
     Route: 042
     Dates: start: 20120315
  6. PRESTARIUM NEO [Concomitant]
     Dosage: UNK UNK, qd
     Route: 048
     Dates: start: 2008
  7. AGEN [Concomitant]
     Dosage: 10 mg, UNK
     Route: 048
     Dates: start: 2008, end: 20120328
  8. AGEN [Concomitant]
     Dosage: 5 mg, qd
     Route: 048
     Dates: start: 20120329, end: 20120329
  9. AGEN [Concomitant]
     Dosage: 10 mg, qd
     Route: 048
     Dates: start: 20120330
  10. SORTIS [Concomitant]
     Dosage: 10 mg, qd
     Route: 048
  11. GANATON [Concomitant]
     Dosage: UNK UNK, tid
     Route: 048
     Dates: start: 20111230
  12. CONTROLOC [Concomitant]
     Dosage: 40 mg, bid
     Route: 048
     Dates: start: 20111230
  13. MILURIT [Concomitant]
     Dosage: 300 mg, qd
     Route: 048
     Dates: start: 20120207, end: 20120321
  14. MILURIT [Concomitant]
     Dosage: 300 mg, qd
     Route: 048
     Dates: start: 20120322
  15. HELICID                            /00661201/ [Concomitant]
     Dosage: UNK UNK, bid
     Route: 048
     Dates: start: 20120220, end: 20120227
  16. HELICID [Concomitant]
     Dosage: UNK UNK, bid
     Route: 048
     Dates: start: 20120322, end: 20120322
  17. HELICID [Concomitant]
     Dosage: UNK UNK, bid
     Route: 048
     Dates: start: 20120323
  18. KALNORMIN [Concomitant]
     Dosage: UNK UNK, bid
     Route: 048
     Dates: start: 20120220
  19. CLEXANE [Concomitant]
     Dosage: UNK UNK, qd
     Route: 058
     Dates: start: 20120207, end: 20120327
  20. CLEXANE [Concomitant]
     Dosage: UNK UNK, qd
     Route: 058
     Dates: start: 20120329
  21. SORBIFER [Concomitant]
     Dosage: UNK
     Dates: start: 20111231, end: 20120217

REACTIONS (1)
  - Cystitis haemorrhagic [Recovered/Resolved]
